FAERS Safety Report 9069966 (Version 1)
Quarter: 2013Q1

REPORT INFORMATION
  Report Type: Report from Study
  Country: US (occurrence: US)
  Receive Date: 20130131
  Receipt Date: 20130131
  Transmission Date: 20140127
  Serious: No
  Sender: FDA-Public Use
  Company Number: US-ABBOTT-12P-163-1004929-00

PATIENT
  Age: 44 Year
  Sex: Female

DRUGS (5)
  1. HUMIRA [Suspect]
     Indication: PSORIASIS
     Dates: start: 2010
  2. SPIRONOLACTONE [Concomitant]
     Indication: HAIR GROWTH ABNORMAL
     Dosage: DAILY
  3. ALBUTEROL [Concomitant]
     Indication: ASTHMA
  4. IMITREX [Concomitant]
     Indication: MIGRAINE
  5. VALIUM [Concomitant]
     Indication: MYALGIA

REACTIONS (1)
  - Injection site pain [Not Recovered/Not Resolved]
